FAERS Safety Report 7335841-4 (Version None)
Quarter: 2011Q1

REPORT INFORMATION
  Report Type: 
  Country: None (occurrence: None)
  Receive Date: 20110301
  Receipt Date: 20110301
  Transmission Date: 20110831
  Serious: Yes (Hospitalization)
  Sender: FDA-Public Use
  Company Number: None

PATIENT
  Age: 79 Year
  Sex: Male
  Weight: 78 kg

DRUGS (1)
  1. METFORMIN HCL [Suspect]
     Indication: DIABETES MELLITUS
     Dosage: 500 MG BID PO
     Route: 048
     Dates: start: 20041001, end: 20100624

REACTIONS (6)
  - RENAL FAILURE ACUTE [None]
  - NAUSEA [None]
  - HYPOGLYCAEMIA [None]
  - BLOOD LACTIC ACID INCREASED [None]
  - VOMITING [None]
  - METABOLIC ACIDOSIS [None]
